FAERS Safety Report 8741202 (Version 2)
Quarter: 2013Q2

REPORT INFORMATION
  Report Type: Spontaneous
  Country: US (occurrence: US)
  Receive Date: 20120824
  Receipt Date: 20130429
  Transmission Date: 20140414
  Serious: No
  Sender: FDA-Public Use
  Company Number: US-ASTRAZENECA-2012SE04706

PATIENT
  Age: 28 Year
  Sex: Female
  Weight: 81.6 kg

DRUGS (6)
  1. SYMBICORT [Suspect]
     Indication: ASTHMA
     Dosage: 2 PUFFS BID
     Route: 055
  2. SEROQUEL [Suspect]
     Route: 048
  3. PREVACID [Concomitant]
  4. RITALIN [Concomitant]
  5. INVEGA [Concomitant]
  6. CYMBALTA [Concomitant]

REACTIONS (3)
  - Dyspnoea [Unknown]
  - Dysphonia [Unknown]
  - Drug dose omission [Unknown]
